FAERS Safety Report 5169709-9 (Version None)
Quarter: 2006Q4

REPORT INFORMATION
  Report Type: 
  Country: None (occurrence: None)
  Receive Date: 20061212
  Receipt Date: 20051219
  Transmission Date: 20070319
  Serious: Yes (Hospitalization)
  Sender: FDA-Public Use
  Company Number: JP-BAYER-200510691BYL

PATIENT
  Age: 65 Year
  Sex: Female
  Weight: 61 kg

DRUGS (7)
  1. ASPIRIN [Suspect]
     Indication: ANGINA PECTORIS
     Dosage: TOTAL DAILY DOSE: 100 MG  UNIT DOSE: 100 MG
     Route: 048
     Dates: start: 20051006, end: 20051101
  2. GASPORT-D [Suspect]
     Indication: REFLUX OESOPHAGITIS
     Dosage: TOTAL DAILY DOSE: 40 MG  UNIT DOSE: 20 MG
     Route: 048
     Dates: start: 20051005, end: 20051101
  3. RAMITALATE-L [Suspect]
     Indication: HYPERTENSION
     Dosage: TOTAL DAILY DOSE: 40 MG  UNIT DOSE: 20 MG
     Route: 048
     Dates: start: 20051005, end: 20051101
  4. CARDENALIN [Concomitant]
     Indication: HYPERTENSION
     Dosage: UNIT DOSE: 2 MG
     Route: 048
     Dates: end: 20051101
  5. DEPAS [Concomitant]
     Dosage: TOTAL DAILY DOSE: 1 MG  UNIT DOSE: 0.5 MG
     Route: 048
     Dates: end: 20051101
  6. CALONAL [Concomitant]
     Indication: HEADACHE
     Dosage: TOTAL DAILY DOSE: 200 MG  UNIT DOSE: 200 MG
     Route: 048
     Dates: start: 20051006, end: 20051101
  7. PL GRANULATE [Concomitant]
     Dosage: TOTAL DAILY DOSE: 3 G  UNIT DOSE: 1 G
     Route: 048
     Dates: start: 20051017, end: 20051026

REACTIONS (3)
  - COUGH [None]
  - INTERSTITIAL LUNG DISEASE [None]
  - PHARYNGOLARYNGEAL PAIN [None]
